FAERS Safety Report 20297642 (Version 1)
Quarter: 2022Q1

REPORT INFORMATION
  Report Type: Spontaneous
  Country: US (occurrence: None)
  Receive Date: 20220105
  Receipt Date: 20220105
  Transmission Date: 20220423
  Serious: No
  Sender: FDA-Public Use
  Company Number: US-ROCHE-2750644

PATIENT
  Sex: Male
  Weight: 21.5 kg

DRUGS (1)
  1. HEMLIBRA [Suspect]
     Active Substance: EMICIZUMAB-KXWH
     Indication: Factor VIII deficiency
     Route: 058
     Dates: start: 20200514, end: 20201231

REACTIONS (2)
  - Injection site reaction [Recovered/Resolved]
  - Autism spectrum disorder [Recovered/Resolved]
